FAERS Safety Report 4919767-9 (Version None)
Quarter: 2006Q1

REPORT INFORMATION
  Report Type: 
  Country: None (occurrence: None)
  Receive Date: 20060216
  Receipt Date: 20060209
  Transmission Date: 20060701
  Serious: Yes (Other)
  Sender: FDA-Public Use
  Company Number: ALMO2006001

PATIENT
  Sex: Female

DRUGS (1)
  1. ALMOGRAN [Suspect]

REACTIONS (1)
  - HALLUCINATION [None]
